FAERS Safety Report 24892913 (Version 1)
Quarter: 2025Q1

REPORT INFORMATION
  Report Type: Spontaneous
  Country: US (occurrence: US)
  Receive Date: 20250128
  Receipt Date: 20250128
  Transmission Date: 20250409
  Serious: No
  Sender: STRIDES
  Company Number: US-STRIDES ARCOLAB LIMITED-2025SP000565

PATIENT
  Age: 44 Year
  Sex: Female

DRUGS (10)
  1. AZITHROMYCIN [Interacting]
     Active Substance: AZITHROMYCIN
     Indication: Mycobacterium avium complex infection
     Route: 065
  2. AZITHROMYCIN [Interacting]
     Active Substance: AZITHROMYCIN
     Indication: Lung disorder
     Route: 065
  3. ETHAMBUTOL [Interacting]
     Active Substance: ETHAMBUTOL HYDROCHLORIDE
     Indication: Mycobacterium avium complex infection
     Route: 065
  4. ETHAMBUTOL [Interacting]
     Active Substance: ETHAMBUTOL HYDROCHLORIDE
     Indication: Lung disorder
     Route: 065
  5. RIFABUTIN [Interacting]
     Active Substance: RIFABUTIN
     Indication: Mycobacterium avium complex infection
     Route: 065
  6. RIFABUTIN [Interacting]
     Active Substance: RIFABUTIN
     Indication: Lung disorder
     Route: 065
  7. TRIKAFTA [Interacting]
     Active Substance: ELEXACAFTOR\IVACAFTOR\TEZACAFTOR
     Indication: Mycobacterium avium complex infection
     Route: 065
  8. TRIKAFTA [Interacting]
     Active Substance: ELEXACAFTOR\IVACAFTOR\TEZACAFTOR
     Indication: Lung disorder
  9. AMIKACIN [Interacting]
     Active Substance: AMIKACIN
     Indication: Mycobacterium avium complex infection
     Route: 065
  10. AMIKACIN [Interacting]
     Active Substance: AMIKACIN
     Indication: Lung disorder
     Route: 065

REACTIONS (5)
  - Drug interaction [Unknown]
  - Mouth ulceration [Unknown]
  - Pruritus [Recovered/Resolved]
  - Pain [Recovered/Resolved]
  - Off label use [Unknown]
